FAERS Safety Report 19454610 (Version 1)
Quarter: 2021Q2

REPORT INFORMATION
  Report Type: Report from Study
  Country: CO (occurrence: CO)
  Receive Date: 20210623
  Receipt Date: 20210623
  Transmission Date: 20210717
  Serious: Yes (Other)
  Sender: FDA-Public Use
  Company Number: CO-UCBSA-2020035657

PATIENT
  Age: 37 Year
  Sex: Female
  Weight: 44 kg

DRUGS (4)
  1. HIERRO [FERROUS SULFATE] [Concomitant]
     Active Substance: FERROUS SULFATE
     Indication: SUPPLEMENTATION THERAPY
     Dosage: UNK
  2. CALCIO [CALCIUM PHOSPHATE] [Concomitant]
     Active Substance: CALCIUM PHOSPHATE
     Indication: SUPPLEMENTATION THERAPY
     Dosage: 600 MILLIGRAM, ONCE DAILY (QD)
  3. ACIDO FOLICO [FOLIC ACID] [Concomitant]
     Active Substance: FOLIC ACID
     Indication: SUPPLEMENTATION THERAPY
     Dosage: UNK
     Route: 048
  4. CERTOLIZUMAB PEGOL [Suspect]
     Active Substance: CERTOLIZUMAB PEGOL
     Indication: RHEUMATOID ARTHRITIS
     Dosage: 400 MILLIGRAM, EV 4 WEEKS
     Route: 058
     Dates: start: 20200520, end: 20200717

REACTIONS (5)
  - Maternal exposure before pregnancy [Unknown]
  - Thyroid disorder [Recovered/Resolved]
  - Maternal exposure during pregnancy [Unknown]
  - Urinary tract infection [Recovered/Resolved]
  - Caesarean section [Unknown]

NARRATIVE: CASE EVENT DATE: 202005
